FAERS Safety Report 10858626 (Version 1)
Quarter: 2015Q1

REPORT INFORMATION
  Report Type: Spontaneous
  Country: US (occurrence: US)
  Receive Date: 20150223
  Receipt Date: 20150223
  Transmission Date: 20150721
  Serious: Yes (Other)
  Sender: FDA-Public Use
  Company Number: US-AMGEN-USASP2013038869

PATIENT
  Age: 53 Year
  Sex: Female

DRUGS (10)
  1. SYMLIN [Concomitant]
     Active Substance: PRAMLINTIDE ACETATE
     Dosage: 600 MUG, UNK
  2. POTASSIUM [Concomitant]
     Active Substance: POTASSIUM
     Dosage: 75 MG, UNK
  3. VITAMIN D                          /00107901/ [Concomitant]
     Active Substance: ERGOCALCIFEROL
     Dosage: 400 UNIT, UNK
  4. LANTUS [Concomitant]
     Active Substance: INSULIN GLARGINE
     Dosage: UNK, 100/ML
  5. FOLIC ACID. [Concomitant]
     Active Substance: FOLIC ACID
     Dosage: UNK
  6. HUMALOG [Concomitant]
     Active Substance: INSULIN LISPRO
     Dosage: UNK, 50/50
  7. ENBREL [Suspect]
     Active Substance: ETANERCEPT
     Indication: PSORIATIC ARTHROPATHY
     Dosage: 50 MG, QWK
     Route: 058
     Dates: start: 20130407
  8. METHOTREXATE [Concomitant]
     Active Substance: METHOTREXATE
     Dosage: 2.5 MG, UNK
  9. LEVOTHYROXIN [Concomitant]
     Active Substance: LEVOTHYROXINE
     Dosage: 25 MUG, UNK
  10. FISH OIL [Concomitant]
     Active Substance: FISH OIL
     Dosage: UNK

REACTIONS (8)
  - Gait disturbance [Unknown]
  - Mobility decreased [Not Recovered/Not Resolved]
  - Peripheral swelling [Not Recovered/Not Resolved]
  - Arthralgia [Not Recovered/Not Resolved]
  - Rotator cuff repair [Recovered/Resolved]
  - Injection site pain [Not Recovered/Not Resolved]
  - Pain in extremity [Unknown]
  - Bronchitis [Unknown]

NARRATIVE: CASE EVENT DATE: 201304
